FAERS Safety Report 13046515 (Version 1)
Quarter: 2016Q4

REPORT INFORMATION
  Report Type: Spontaneous
  Country: US (occurrence: US)
  Receive Date: 20161220
  Receipt Date: 20161220
  Transmission Date: 20170207
  Serious: No
  Sender: FDA-Public Use
  Company Number: US-PFIZER INC-2016589953

PATIENT
  Sex: Female

DRUGS (1)
  1. XELJANZ [Suspect]
     Active Substance: TOFACITINIB CITRATE

REACTIONS (16)
  - Dry mouth [Unknown]
  - Nausea [Unknown]
  - Pollakiuria [Unknown]
  - Joint range of motion decreased [Unknown]
  - Fatigue [Unknown]
  - Diarrhoea [Unknown]
  - Dyspepsia [Unknown]
  - Sleep disorder [Unknown]
  - Nodal osteoarthritis [Unknown]
  - Back pain [Unknown]
  - Spider vein [Unknown]
  - Foot deformity [Unknown]
  - Dyspnoea [Unknown]
  - Poor quality sleep [Unknown]
  - Nocturia [Unknown]
  - Haemangioma [Unknown]
